FAERS Safety Report 5097090-2 (Version None)
Quarter: 2006Q3

REPORT INFORMATION
  Report Type: 
  Country: None (occurrence: None)
  Receive Date: 20060906
  Receipt Date: 20060726
  Transmission Date: 20061208
  Serious: Yes (Hospitalization)
  Sender: FDA-Public Use
  Company Number: HQWYE508231JUL06

PATIENT
  Sex: Female
  Weight: 46 kg

DRUGS (15)
  1. ENBREL [Suspect]
     Indication: RHEUMATOID ARTHRITIS
     Route: 058
     Dates: start: 20051011
  2. ENBREL [Suspect]
     Route: 058
     Dates: start: 20051108, end: 20060120
  3. ENBREL [Suspect]
     Route: 058
     Dates: start: 20060203, end: 20060404
  4. ENBREL [Suspect]
     Route: 058
     Dates: start: 20060516
  5. ISONIAZID [Suspect]
     Indication: DRUG USE FOR UNKNOWN INDICATION
     Route: 048
     Dates: start: 20050829
  6. RANITIDINE HYDROCHLORIDE [Concomitant]
     Route: 048
  7. CLINORIL [Concomitant]
     Route: 048
  8. MUCOSTA [Concomitant]
     Route: 048
  9. NIPOLAZIN [Concomitant]
     Route: 048
  10. RHYTHMY [Concomitant]
     Route: 048
  11. ALFAROL [Concomitant]
     Route: 048
  12. EPEL [Concomitant]
     Route: 048
  13. SHINLUCK [Concomitant]
     Dosage: UNKNOWN
     Route: 048
  14. ASPARA-CA [Concomitant]
     Route: 048
  15. RESLIN [Concomitant]
     Route: 048

REACTIONS (3)
  - CYSTITIS HAEMORRHAGIC [None]
  - HAEMATURIA [None]
  - RASH [None]
